FAERS Safety Report 8772394 (Version 2)
Quarter: 2012Q4

REPORT INFORMATION
  Report Type: 
  Country: JP (occurrence: JP)
  Receive Date: 20120906
  Receipt Date: 20120928
  Transmission Date: 20130627
  Serious: Yes (Hospitalization)
  Sender: FDA-Public Use
  Company Number: JP-AMGEN-JPNSP2012055431

PATIENT
  Age: 83 Year
  Sex: Male

DRUGS (1)
  1. RANMARK [Suspect]
     Indication: METASTASES TO BONE
     Dosage: UNK UNK, UNK
     Route: 058
     Dates: start: 20120720

REACTIONS (1)
  - Hypocalcaemia [Recovering/Resolving]
